FAERS Safety Report 12656452 (Version 1)
Quarter: 2016Q3

REPORT INFORMATION
  Report Type: Spontaneous
  Country: US (occurrence: US)
  Receive Date: 20160816
  Receipt Date: 20160816
  Transmission Date: 20161109
  Serious: No
  Sender: FDA-Public Use
  Company Number: US-PERRIGO-15US011081

PATIENT
  Age: 87 Year
  Sex: Male
  Weight: 73.92 kg

DRUGS (6)
  1. LOSARTAN. [Concomitant]
     Active Substance: LOSARTAN
     Indication: HYPERTENSION
     Dosage: UNK
     Route: 065
     Dates: start: 2013
  2. MUCINEX [Suspect]
     Active Substance: GUAIFENESIN
     Indication: SECRETION DISCHARGE
     Dosage: 1200 MG, SINGLE
     Route: 048
     Dates: start: 20151019, end: 20151019
  3. LORATADINE. [Suspect]
     Active Substance: LORATADINE
     Indication: LACRIMATION INCREASED
  4. LORATADINE. [Suspect]
     Active Substance: LORATADINE
     Indication: UPPER-AIRWAY COUGH SYNDROME
     Dosage: 10 MG, QHS
     Route: 048
     Dates: start: 20151018, end: 20151019
  5. LORATADINE. [Suspect]
     Active Substance: LORATADINE
     Indication: EYE PRURITUS
  6. DIAZEPAM. [Concomitant]
     Active Substance: DIAZEPAM
     Indication: ANXIETY
     Dosage: UNK
     Route: 065
     Dates: start: 2013

REACTIONS (7)
  - Therapeutic response unexpected [Recovered/Resolved]
  - Restlessness [Recovered/Resolved]
  - Dyspnoea [Unknown]
  - Drug effect decreased [Unknown]
  - Off label use [None]
  - Somnolence [Recovered/Resolved]
  - Drug interaction [Recovered/Resolved]

NARRATIVE: CASE EVENT DATE: 20151018
